FAERS Safety Report 9243300 (Version 1)
Quarter: 2013Q2

REPORT INFORMATION
  Report Type: Spontaneous
  Country: US (occurrence: US)
  Receive Date: 20130419
  Receipt Date: 20130419
  Transmission Date: 20140414
  Serious: Yes (Hospitalization)
  Sender: FDA-Public Use
  Company Number: US-BAXTER-2013BAX012926

PATIENT
  Age: 21 Year
  Sex: Male

DRUGS (2)
  1. DIANEAL LOW CALCIUM [Suspect]
     Indication: PERITONEAL DIALYSIS
     Route: 033
     Dates: start: 20121218
  2. DIANEAL LOW CALCIUM [Suspect]
     Route: 033
     Dates: start: 20121218

REACTIONS (1)
  - Systemic lupus erythematosus [Recovered/Resolved]
